FAERS Safety Report 8795068 (Version 1)
Quarter: 2012Q4

REPORT INFORMATION
  Report Type: 
  Country: PK (occurrence: PK)
  Receive Date: 20120918
  Receipt Date: 20120918
  Transmission Date: 20130627
  Serious: Yes (Death)
  Sender: FDA-Public Use
  Company Number: PHHY2006PK009809

PATIENT
  Sex: Female

DRUGS (1)
  1. GLIVEC [Suspect]
     Indication: CHRONIC MYELOID LEUKAEMIA
     Dates: start: 20060331

REACTIONS (4)
  - Chronic myeloid leukaemia [Fatal]
  - Thrombocytopenia [Fatal]
  - Neoplasm progression [Fatal]
  - Malignant neoplasm progression [Fatal]
